FAERS Safety Report 16852044 (Version 1)
Quarter: 2019Q3

REPORT INFORMATION
  Report Type: Spontaneous
  Country: US (occurrence: US)
  Receive Date: 20190925
  Receipt Date: 20190925
  Transmission Date: 20191005
  Serious: No
  Sender: FDA-Public Use
  Company Number: US-ASTRAZENECA-2019SF23243

PATIENT
  Age: 27315 Day
  Sex: Female
  Weight: 79.8 kg

DRUGS (20)
  1. METFORMIN ER [Concomitant]
     Active Substance: METFORMIN HYDROCHLORIDE
     Dosage: 750.0MG UNKNOWN
  2. RAMIPRIL. [Concomitant]
     Active Substance: RAMIPRIL
     Dosage: 2.5MG UNKNOWN
  3. BUSPIRONE HCL [Concomitant]
     Active Substance: BUSPIRONE HYDROCHLORIDE
     Dosage: 7.5MG UNKNOWN
  4. ERYTHROMYCIN OINTMENT [Concomitant]
     Active Substance: ERYTHROMYCIN
  5. CLOBETASOL PROPIONATE. [Concomitant]
     Active Substance: CLOBETASOL PROPIONATE
     Indication: NEURODERMATITIS
     Dosage: 0.05 PERCENT
  6. HYDROQUINONE. [Concomitant]
     Active Substance: HYDROQUINONE
  7. BYDUREON [Suspect]
     Active Substance: EXENATIDE
     Indication: TYPE 2 DIABETES MELLITUS
     Dosage: BYDUREON PEN
     Route: 058
     Dates: start: 20190815
  8. LIPITOR [Concomitant]
     Active Substance: ATORVASTATIN CALCIUM
     Dosage: 10.0MG UNKNOWN
  9. PROAIR INH [Concomitant]
  10. NAPROXEN. [Concomitant]
     Active Substance: NAPROXEN
     Indication: PAIN
  11. HYDROCORTISONE CREAM [Concomitant]
     Active Substance: HYDROCORTISONE
  12. DIFLORASONE DIACETATE. [Concomitant]
     Active Substance: DIFLORASONE DIACETATE
     Indication: PIGMENTATION DISORDER
  13. ALBUTEROL HFA [Concomitant]
     Active Substance: ALBUTEROL SULFATE
  14. REFRESH OPTIVE [Concomitant]
     Active Substance: CARBOXYMETHYLCELLULOSE SODIUM\GLYCERIN
  15. HYLATOPIC CREAM [Concomitant]
     Indication: SCAR
  16. NEURONTIN [Concomitant]
     Active Substance: GABAPENTIN
     Dosage: 350.0MG UNKNOWN
  17. FLUTICASONE. [Concomitant]
     Active Substance: FLUTICASONE
  18. BYDUREON [Suspect]
     Active Substance: EXENATIDE
     Indication: TYPE 2 DIABETES MELLITUS
     Dosage: BYDUREON SDT
     Route: 065
  19. ANTIVERT [Concomitant]
     Active Substance: MECLIZINE HYDROCHLORIDE
     Dosage: 25.0MG UNKNOWN
  20. FLUOCINONIDE CREAM [Concomitant]
     Active Substance: FLUOCINONIDE
     Indication: NEURODERMATITIS

REACTIONS (7)
  - Product dispensing error [Unknown]
  - Incorrect dose administered by device [Unknown]
  - Injection site extravasation [Unknown]
  - Product dose omission [Unknown]
  - Obsessive-compulsive disorder [Unknown]
  - Device issue [Unknown]
  - Injection site haemorrhage [Unknown]

NARRATIVE: CASE EVENT DATE: 20190815
